FAERS Safety Report 8002069-4 (Version None)
Quarter: 2011Q4

REPORT INFORMATION
  Report Type: 
  Country: None (occurrence: None)
  Receive Date: 20111222
  Receipt Date: 20111212
  Transmission Date: 20120403
  Serious: Yes (Other)
  Sender: FDA-Public Use
  Company Number: US-NAPPMUNDI-USA-2011-0078506

PATIENT
  Sex: Male

DRUGS (2)
  1. METHADONE HCL [Suspect]
     Indication: PAIN
  2. OXYCONTIN [Suspect]
     Indication: PAIN
     Dosage: 80 MG, Q8H

REACTIONS (3)
  - TREMOR [None]
  - DRUG ABUSE [None]
  - DELIRIUM TREMENS [None]
